FAERS Safety Report 6175906-6 (Version None)
Quarter: 2009Q2

REPORT INFORMATION
  Report Type: 
  Country: None (occurrence: None)
  Receive Date: 20090501
  Receipt Date: 20090427
  Transmission Date: 20091009
  Serious: Yes (Death)
  Sender: FDA-Public Use
  Company Number: FR-ASTRAZENECA-2009AC01201

PATIENT
  Sex: Male

DRUGS (5)
  1. LIDOCAINE [Suspect]
     Indication: LOCAL ANAESTHESIA
     Route: 037
  2. PARACETAMOL [Concomitant]
     Route: 037
  3. PROPOFOL [Concomitant]
     Route: 037
  4. FENTANYL [Concomitant]
     Route: 037
  5. AMOXICILLIN AND CLAVULANATE POTASSIUM [Concomitant]
     Route: 037

REACTIONS (1)
  - CONVULSION [None]
